FAERS Safety Report 24819593 (Version 2)
Quarter: 2025Q1

REPORT INFORMATION
  Report Type: Spontaneous
  Country: JP (occurrence: JP)
  Receive Date: 20250108
  Receipt Date: 20250206
  Transmission Date: 20250408
  Serious: No
  Sender: MYLAN
  Company Number: JP-MYLANLABS-2024M1116290

PATIENT
  Age: 8 Year

DRUGS (1)
  1. EPIPEN [Suspect]
     Active Substance: EPINEPHRINE
     Indication: Product used for unknown indication
     Route: 065

REACTIONS (1)
  - Product quality issue [Unknown]

NARRATIVE: CASE EVENT DATE: 20241224
